FAERS Safety Report 8687450 (Version 3)
Quarter: 2012Q4

REPORT INFORMATION
  Report Type: 
  Country: US (occurrence: US)
  Receive Date: 20120727
  Receipt Date: 20120906
  Transmission Date: 20130627
  Serious: Yes (Other)
  Sender: FDA-Public Use
  Company Number: US-PFIZER INC-2012177400

PATIENT
  Sex: Female

DRUGS (2)
  1. DILANTIN-125 [Suspect]
     Dosage: UNK
  2. PRISTIQ [Suspect]
     Dosage: UNK

REACTIONS (9)
  - Loss of consciousness [Unknown]
  - Convulsion [Unknown]
  - Impaired driving ability [Unknown]
  - Psychomotor skills impaired [Unknown]
  - Wheelchair user [Unknown]
  - Thyroid disorder [Unknown]
  - Musculoskeletal discomfort [Unknown]
  - Gastric disorder [Unknown]
  - Headache [Unknown]
